FAERS Safety Report 21204709 (Version 2)
Quarter: 2022Q3

REPORT INFORMATION
  Report Type: Spontaneous
  Country: GB (occurrence: GB)
  Receive Date: 20220812
  Receipt Date: 20220919
  Transmission Date: 20221027
  Serious: Yes (Other)
  Sender: FDA-Public Use
  Company Number: GB-TORRENT-00028782

PATIENT
  Weight: 70 kg

DRUGS (2)
  1. RISPERDAL [Suspect]
     Active Substance: RISPERIDONE
     Indication: Anxiety
     Dosage: 1 MG TABLET ONCE AT NIGHT, 60 FILM COATED TABLETS
     Route: 048
     Dates: start: 201809
  2. RISPERDAL [Suspect]
     Active Substance: RISPERIDONE
     Indication: Stress

REACTIONS (4)
  - Mental impairment [Unknown]
  - Communication disorder [Unknown]
  - Fatigue [Unknown]
  - Bradykinesia [Unknown]
